FAERS Safety Report 4307450-2 (Version None)
Quarter: 2004Q1

REPORT INFORMATION
  Report Type: 
  Country: None (occurrence: None)
  Receive Date: 20040226
  Receipt Date: 20040213
  Transmission Date: 20041129
  Serious: Yes (Hospitalization)
  Sender: FDA-Public Use
  Company Number: DE-JNJFOC-20040202528

PATIENT
  Age: 47 Year
  Sex: Female
  Weight: 57 kg

DRUGS (8)
  1. REMICADE [Suspect]
     Indication: RHEUMATOID ARTHRITIS
     Dosage: 3 MG/KG, INTRAVENOUS
     Route: 042
     Dates: start: 20031222, end: 20040203
  2. METHOTREXATE [Concomitant]
  3. PREDNISONE [Concomitant]
  4. CALCIUM (CALCIUM) [Concomitant]
  5. VITAMIN E [Concomitant]
  6. ESTROGENS (ESTROGENS) [Concomitant]
  7. METHOTREXATE [Concomitant]
  8. PREDNISONE [Concomitant]

REACTIONS (6)
  - BACTERIAL INFECTION [None]
  - CULTURE URINE POSITIVE [None]
  - ESCHERICHIA INFECTION [None]
  - PERICARDIAL EFFUSION [None]
  - PLEURISY [None]
  - SEPSIS [None]
